FAERS Safety Report 6971621-7 (Version None)
Quarter: 2010Q3

REPORT INFORMATION
  Report Type: 
  Country: None (occurrence: None)
  Receive Date: 20100908
  Receipt Date: 20100827
  Transmission Date: 20110219
  Serious: Yes (Other)
  Sender: FDA-Public Use
  Company Number: US-ELI_LILLY_AND_COMPANY-US201008008547

PATIENT
  Age: 74 Year
  Sex: Male

DRUGS (4)
  1. CIALIS [Suspect]
     Indication: ERECTILE DYSFUNCTION
     Dosage: UNK, AS NEEDED
  2. ALPRAZOLAM [Concomitant]
     Dosage: 1 MG, DAILY (1/D)
  3. FUROSEMIDE [Concomitant]
     Dosage: 20 MG, UNK
  4. METOPROLOL TARTRATE [Concomitant]

REACTIONS (1)
  - PROSTATE CANCER [None]
